FAERS Safety Report 13365744 (Version 1)
Quarter: 2017Q1

REPORT INFORMATION
  Report Type: Spontaneous
  Country: US (occurrence: US)
  Receive Date: 20170323
  Receipt Date: 20170323
  Transmission Date: 20170429
  Serious: No
  Sender: FDA-Public Use
  Company Number: US-WARNER CHILCOTT-2016-002024

PATIENT
  Age: 55 Year
  Sex: Female

DRUGS (3)
  1. CARDIOVASCULAR SYSTEM DRUGS [Concomitant]
     Active Substance: UNSPECIFIED INGREDIENT
     Dosage: UNKNOWN
     Route: 048
  2. GABAPENTIN. [Concomitant]
     Active Substance: GABAPENTIN
     Dosage: UNKNOWN
     Route: 048
  3. ESTRACE [Suspect]
     Active Substance: ESTRADIOL
     Dosage: 1 GRAM, EVERY DAY
     Route: 061
     Dates: start: 201608, end: 20160828

REACTIONS (4)
  - Oedema genital [Recovering/Resolving]
  - Weight increased [Not Recovered/Not Resolved]
  - Abdominal pain lower [Recovering/Resolving]
  - Fluid retention [Recovering/Resolving]

NARRATIVE: CASE EVENT DATE: 201608
